FAERS Safety Report 18751986 (Version 3)
Quarter: 2021Q1

REPORT INFORMATION
  Report Type: Spontaneous
  Country: US (occurrence: US)
  Receive Date: 20210118
  Receipt Date: 20210210
  Transmission Date: 20210419
  Serious: No
  Sender: FDA-Public Use
  Company Number: US-GLAXOSMITHKLINE-US2021004399

PATIENT
  Sex: Female

DRUGS (1)
  1. BREO ELLIPTA [Suspect]
     Active Substance: FLUTICASONE FUROATE\VILANTEROL TRIFENATATE
     Indication: LUNG NEOPLASM MALIGNANT
     Dosage: UNK UNK,100/25
     Route: 055

REACTIONS (5)
  - Product complaint [Unknown]
  - Therapy cessation [Unknown]
  - Product dose omission issue [Unknown]
  - Dyspnoea [Unknown]
  - Product use in unapproved indication [Unknown]
